FAERS Safety Report 8980225 (Version 1)
Quarter: 2012Q4

REPORT INFORMATION
  Report Type: 
  Country: FR (occurrence: FR)
  Receive Date: 20121221
  Receipt Date: 20121221
  Transmission Date: 20130627
  Serious: Yes (Death, Congenital Anomaly)
  Sender: FDA-Public Use
  Company Number: FR-SANOFI-AVENTIS-2012SA091894

PATIENT
  Sex: Male

DRUGS (1)
  1. PLAQUENIL [Suspect]
     Indication: MATERNAL DRUG EXPOSURE
     Route: 064

REACTIONS (2)
  - Congenital central nervous system anomaly [Fatal]
  - Foetal exposure during pregnancy [Unknown]
